FAERS Safety Report 6096576-1 (Version None)
Quarter: 2009Q1

REPORT INFORMATION
  Report Type: 
  Country: None (occurrence: None)
  Receive Date: 20090225
  Receipt Date: 20090225
  Transmission Date: 20090719
  Serious: No
  Sender: FDA-Public Use
  Company Number: None

PATIENT
  Sex: Male

DRUGS (4)
  1. RISPERIDONE [Suspect]
     Indication: AFFECTIVE DISORDER
     Dosage: 2 TABS AM, 1 NOON, 2 PM P.O.
     Route: 048
     Dates: start: 20090115, end: 20090215
  2. RISPERIDONE [Suspect]
     Indication: REACTIVE ATTACHMENT DISORDER OF INFANCY OR EARLY CHILDHOOD
     Dosage: 2 TABS AM, 1 NOON, 2 PM P.O.
     Route: 048
     Dates: start: 20090115, end: 20090215
  3. METADATE CD [Concomitant]
  4. STRATTERA [Concomitant]

REACTIONS (3)
  - AGGRESSION [None]
  - IRRITABILITY [None]
  - PRODUCT QUALITY ISSUE [None]
